FAERS Safety Report 10354425 (Version 5)
Quarter: 2014Q4

REPORT INFORMATION
  Report Type: Spontaneous
  Country: US (occurrence: US)
  Receive Date: 20140731
  Receipt Date: 20141020
  Transmission Date: 20150528
  Serious: Yes (Hospitalization, Disabling, Other)
  Sender: FDA-Public Use
  Company Number: US-PFIZER INC-2014210417

PATIENT
  Sex: Male

DRUGS (1)
  1. GLIPIZIDE. [Suspect]
     Active Substance: GLIPIZIDE
     Indication: BLOOD GLUCOSE INCREASED
     Dosage: UNK
     Dates: start: 201301

REACTIONS (13)
  - Coagulopathy [Unknown]
  - Plasminogen activator inhibitor decreased [Unknown]
  - Product label issue [Unknown]
  - Coagulation time abnormal [Unknown]
  - Limb injury [Unknown]
  - Tendon disorder [Unknown]
  - Thrombosis [Unknown]
  - Skin lesion [Unknown]
  - Malaise [Unknown]
  - Angiopathy [Unknown]
  - Necrosis [Unknown]
  - Skin ulcer [Unknown]
  - Laceration [Unknown]

NARRATIVE: CASE EVENT DATE: 2013
